FAERS Safety Report 8807401 (Version 1)
Quarter: 2012Q4

REPORT INFORMATION
  Report Type: 
  Country: PH (occurrence: PH)
  Receive Date: 20120925
  Receipt Date: 20120925
  Transmission Date: 20130627
  Serious: Yes (Death, Other)
  Sender: FDA-Public Use
  Company Number: PHHY2009PH51864

PATIENT
  Age: 77 Year
  Sex: Female

DRUGS (3)
  1. GLIVEC [Suspect]
     Indication: CHRONIC MYELOID LEUKAEMIA
     Dosage: 400 mg, Daily
     Dates: start: 20060130
  2. GLIVEC [Suspect]
     Dosage: 800 mg, Daily
  3. ANTIHYPERTENSIVE DRUGS [Concomitant]

REACTIONS (3)
  - Myocardial infarction [Fatal]
  - Cerebrovascular accident [Fatal]
  - Blast crisis in myelogenous leukaemia [Unknown]
